FAERS Safety Report 7635768-4 (Version None)
Quarter: 2011Q3

REPORT INFORMATION
  Report Type: 
  Country: None (occurrence: None)
  Receive Date: 20110726
  Receipt Date: 20110724
  Transmission Date: 20111222
  Serious: Yes (Other)
  Sender: FDA-Public Use
  Company Number: US-PFIZER INC-2011168128

PATIENT
  Sex: Female
  Weight: 63.492 kg

DRUGS (1)
  1. ADVIL [Suspect]
     Indication: TOOTHACHE
     Dosage: UNK
     Route: 048
     Dates: start: 20110722

REACTIONS (2)
  - HAEMOPTYSIS [None]
  - INCORRECT DOSE ADMINISTERED [None]
